FAERS Safety Report 13661462 (Version 1)
Quarter: 2017Q2

REPORT INFORMATION
  Report Type: Spontaneous
  Country: US (occurrence: US)
  Receive Date: 20170616
  Receipt Date: 20170616
  Transmission Date: 20170830
  Serious: No
  Sender: FDA-Public Use
  Company Number: US-US WORLDMEDS, LLC-USW201610-000720

PATIENT
  Age: 77 Year
  Sex: Male
  Weight: 131.08 kg

DRUGS (8)
  1. COMTAN [Concomitant]
     Active Substance: ENTACAPONE
  2. SINEMET [Concomitant]
     Active Substance: CARBIDOPA\LEVODOPA
  3. APOKYN [Suspect]
     Active Substance: APOMORPHINE HYDROCHLORIDE
  4. APOKYN [Suspect]
     Active Substance: APOMORPHINE HYDROCHLORIDE
     Indication: PARKINSON^S DISEASE
     Route: 058
     Dates: start: 20161007
  5. GABAPENTIN. [Concomitant]
     Active Substance: GABAPENTIN
  6. COGENTIN [Concomitant]
     Active Substance: BENZTROPINE MESYLATE
  7. AZILECT [Concomitant]
     Active Substance: RASAGILINE MESYLATE
  8. KLONOPIN [Concomitant]
     Active Substance: CLONAZEPAM

REACTIONS (3)
  - Fall [Recovered/Resolved]
  - Dizziness [Recovered/Resolved]
  - Cold sweat [Recovered/Resolved]

NARRATIVE: CASE EVENT DATE: 20161018
